FAERS Safety Report 9913752 (Version 1)
Quarter: 2014Q1

REPORT INFORMATION
  Report Type: Spontaneous
  Country: US (occurrence: None)
  Receive Date: 20140214
  Receipt Date: 20140214
  Transmission Date: 20141002
  Serious: Yes (Death)
  Sender: FDA-Public Use
  Company Number: AUR-APL-2014-01441

PATIENT
  Age: 24 Year
  Sex: Male

DRUGS (6)
  1. PAROXETINE (PAROXETINE) [Suspect]
  2. FLUOXETINE (FLUOXETINE) [Suspect]
  3. HEROIN (DIAMORPHINE) (DIAMORPHINE) [Suspect]
     Dosage: PARENTERAL
  4. CLONAZEPAM (CLONAZEPAM) (CLONAZEPAM) [Suspect]
  5. CODEINE (CODEINE) [Suspect]
  6. COCAINE (COCAINE) [Suspect]

REACTIONS (2)
  - Drug abuse [None]
  - Toxicity to various agents [None]
